FAERS Safety Report 16716159 (Version 3)
Quarter: 2019Q4

REPORT INFORMATION
  Report Type: Report from Study
  Country: US (occurrence: US)
  Receive Date: 20190819
  Receipt Date: 20191016
  Transmission Date: 20200122
  Serious: Yes (Hospitalization)
  Sender: FDA-Public Use
  Company Number: PHHO2019US008184

PATIENT
  Age: 59 Year
  Sex: Male
  Weight: 65.3 kg

DRUGS (2)
  1. KISQALI [Suspect]
     Active Substance: RIBOCICLIB
     Indication: NEUROENDOCRINE TUMOUR
     Dosage: 200 MG, UNK
     Route: 048
     Dates: start: 20190429, end: 20190506
  2. ZORTRESS [Suspect]
     Active Substance: EVEROLIMUS
     Indication: NEUROENDOCRINE TUMOUR
     Dosage: 5 MG, UNK
     Route: 048
     Dates: start: 20190429, end: 20190506

REACTIONS (8)
  - Pyrexia [Unknown]
  - Asthenia [Unknown]
  - Dehydration [Unknown]
  - Pneumonia [Unknown]
  - Fatigue [Unknown]
  - Nausea [Unknown]
  - Abdominal pain [Unknown]
  - Cough [Unknown]

NARRATIVE: CASE EVENT DATE: 20190507
